FAERS Safety Report 12369981 (Version 1)
Quarter: 2016Q2

REPORT INFORMATION
  Report Type: Spontaneous
  Country: FR (occurrence: FR)
  Receive Date: 20160516
  Receipt Date: 20160516
  Transmission Date: 20160815
  Serious: Yes (Hospitalization)
  Sender: FDA-Public Use
  Company Number: FR-TAKEDA-2016TUS005268

PATIENT
  Age: 35 Year
  Sex: Female

DRUGS (4)
  1. METOJECT [Concomitant]
     Active Substance: METHOTREXATE SODIUM
     Indication: COLITIS ULCERATIVE
     Dosage: 20 MG, QD
     Dates: start: 201502
  2. ENTYVIO [Suspect]
     Active Substance: VEDOLIZUMAB
     Indication: COLITIS ULCERATIVE
     Dosage: UNK
     Route: 065
     Dates: start: 20151211
  3. SIMPONI [Concomitant]
     Active Substance: GOLIMUMAB
     Indication: COLITIS ULCERATIVE
     Dosage: 100 MG, Q3WEEKS
     Dates: start: 20150512, end: 20151201
  4. APIXABAN [Concomitant]
     Active Substance: APIXABAN
     Indication: PULMONARY EMBOLISM
     Dosage: 5 MG, QD
     Dates: start: 20150807

REACTIONS (1)
  - Hidradenitis [Recovering/Resolving]

NARRATIVE: CASE EVENT DATE: 20160125
